FAERS Safety Report 19965652 (Version 1)
Quarter: 2021Q4

REPORT INFORMATION
  Report Type: Spontaneous
  Country: US (occurrence: US)
  Receive Date: 20211018
  Receipt Date: 20211018
  Transmission Date: 20220303
  Serious: No
  Sender: FDA-Public Use
  Company Number: US-PFIZER INC-2021498329

PATIENT
  Age: 83 Year
  Sex: Female
  Weight: 92.53 kg

DRUGS (3)
  1. IBRANCE [Suspect]
     Active Substance: PALBOCICLIB
     Indication: Breast cancer metastatic
     Dosage: 125 MG, CYCLIC (ONE TABLET DAILY FOR THREE WEEKS AND OFF FOR ONE WEEK)
     Dates: start: 20210410
  2. TAXOTERE [Suspect]
     Active Substance: DOCETAXEL
     Indication: Breast cancer metastatic
     Dosage: 161 MG
     Dates: start: 20210318
  3. PERJETA [Suspect]
     Active Substance: PERTUZUMAB
     Indication: Breast cancer metastatic
     Dosage: 840 MG
     Route: 042
     Dates: start: 20210318

REACTIONS (6)
  - Malaise [Unknown]
  - Loss of personal independence in daily activities [Unknown]
  - Diarrhoea [Recovering/Resolving]
  - Eating disorder [Unknown]
  - Nausea [Unknown]
  - Abdominal pain upper [Unknown]

NARRATIVE: CASE EVENT DATE: 20210318
